FAERS Safety Report 8353359-7 (Version None)
Quarter: 2012Q2

REPORT INFORMATION
  Report Type: 
  Country: None (occurrence: None)
  Receive Date: 20120511
  Receipt Date: 20120507
  Transmission Date: 20120825
  Serious: Yes (Other)
  Sender: FDA-Public Use
  Company Number: PHHY2010CA19115

PATIENT
  Sex: Female
  Weight: 61 kg

DRUGS (3)
  1. ENSURE [Concomitant]
  2. SANDOSTATIN LAR [Suspect]
     Dosage: 60 MG, EVERY 4 WEEKS
     Route: 030
     Dates: start: 20081230
  3. SANDOSTATIN LAR [Suspect]
     Indication: METASTATIC CARCINOID TUMOUR
     Dosage: 90 MG EVERY 4 WEEKS
     Route: 030
     Dates: start: 20081230

REACTIONS (6)
  - LOCALISED OEDEMA [None]
  - HEPATIC NEOPLASM [None]
  - ABDOMINAL DISTENSION [None]
  - DIARRHOEA [None]
  - FLUSHING [None]
  - OEDEMA PERIPHERAL [None]
